FAERS Safety Report 17658469 (Version 2)
Quarter: 2020Q2

REPORT INFORMATION
  Report Type: Spontaneous
  Country: JP (occurrence: JP)
  Receive Date: 20200412
  Receipt Date: 20200416
  Transmission Date: 20200713
  Serious: Yes (Other)
  Sender: FDA-Public Use
  Company Number: JP-ROCHE-2581531

PATIENT
  Age: 18 Year
  Sex: Female
  Weight: 33.9 kg

DRUGS (5)
  1. PREDNISOLONE. [Suspect]
     Active Substance: PREDNISOLONE
     Indication: SYSTEMIC LUPUS ERYTHEMATOSUS
     Dosage: 8, 20, 30, 25, 20 AND 12.5 MG
     Route: 065
  2. CELLCEPT [Suspect]
     Active Substance: MYCOPHENOLATE MOFETIL\MYCOPHENOLATE MOFETIL HYDROCHLORIDE
     Indication: LUPUS NEPHRITIS
     Route: 065
  3. RITUXAN [Suspect]
     Active Substance: RITUXIMAB
     Indication: SYSTEMIC LUPUS ERYTHEMATOSUS
     Route: 041
  4. TACROLIMUS MONOHYDRATE [Suspect]
     Active Substance: TACROLIMUS
     Indication: LUPUS NEPHRITIS
     Route: 065
  5. METHYLPREDNISOLONE SODIUM SUCCINATE. [Suspect]
     Active Substance: METHYLPREDNISOLONE SODIUM SUCCINATE
     Indication: LUPUS NEPHRITIS
     Dosage: 500 MG AND 1000MG
     Route: 065

REACTIONS (10)
  - Generalised tonic-clonic seizure [Unknown]
  - Viral vasculitis [Unknown]
  - Retinitis viral [Unknown]
  - Intracranial aneurysm [Unknown]
  - Cerebral haemorrhage [Unknown]
  - Encephalitis viral [Unknown]
  - Intentional product use issue [Unknown]
  - Off label use [Unknown]
  - Pneumonia aspiration [Unknown]
  - Hydrocephalus [Unknown]
